FAERS Safety Report 4617917-5 (Version None)
Quarter: 2005Q1

REPORT INFORMATION
  Report Type: 
  Country: None (occurrence: None)
  Receive Date: 20050324
  Receipt Date: 20050309
  Transmission Date: 20050727
  Serious: Yes (Hospitalization)
  Sender: FDA-Public Use
  Company Number: FR-BRISTOL-MYERS SQUIBB COMPANY-12892352

PATIENT
  Age: 15 Month

DRUGS (9)
  1. VIDEX [Suspect]
     Indication: HIV INFECTION
     Route: 064
     Dates: end: 20020429
  2. EPIVIR [Suspect]
     Indication: HIV INFECTION
     Route: 064
     Dates: end: 20020429
  3. VIRAMUNE [Suspect]
     Indication: HIV INFECTION
     Route: 064
     Dates: end: 20020429
  4. ZIAGEN [Suspect]
     Indication: HIV INFECTION
     Route: 064
     Dates: end: 20020429
  5. TENOFOVIR [Suspect]
     Route: 064
     Dates: start: 20020429, end: 20020704
  6. LOPINAVIR + RITONAVIR [Suspect]
     Route: 064
     Dates: start: 20020429, end: 20020704
  7. ZALCITABINE [Suspect]
     Route: 064
     Dates: start: 20020429, end: 20020704
  8. ZIDOVUDINE [Concomitant]
     Route: 064
     Dates: start: 20020704, end: 20020704
  9. ZIDOVUDINE [Concomitant]
     Route: 048

REACTIONS (3)
  - DEVELOPMENTAL COORDINATION DISORDER [None]
  - LATE DEVELOPER [None]
  - MENTAL RETARDATION SEVERITY UNSPECIFIED [None]
